FAERS Safety Report 7291014-5 (Version None)
Quarter: 2011Q1

REPORT INFORMATION
  Report Type: 
  Country: None (occurrence: None)
  Receive Date: 20110214
  Receipt Date: 20110203
  Transmission Date: 20110831
  Serious: Yes (Other)
  Sender: FDA-Public Use
  Company Number: PHHY2011DK09743

PATIENT
  Sex: Female

DRUGS (1)
  1. EBETREX [Suspect]
     Indication: RHEUMATOID ARTHRITIS
     Dosage: UNK
     Route: 048
     Dates: start: 20061012

REACTIONS (3)
  - FALL [None]
  - RADIUS FRACTURE [None]
  - OSTEOPOROSIS [None]
